FAERS Safety Report 4593304-3 (Version None)
Quarter: 2005Q1

REPORT INFORMATION
  Report Type: 
  Country: None (occurrence: None)
  Receive Date: 20050224
  Receipt Date: 20040413
  Transmission Date: 20050727
  Serious: No
  Sender: FDA-Public Use
  Company Number: US-BRISTOL-MYERS SQUIBB COMPANY-12563045

PATIENT
  Age: 57 Year
  Sex: Female
  Weight: 63 kg

DRUGS (1)
  1. EXCEDRIN (MIGRAINE) [Suspect]
     Indication: MIGRAINE
     Dosage: APPROXIMATELY 4 MO. AGO SHE USED 2 CAPS. AFTER 3 HRS, W/O RELIEF SHE TOOK 2 CAPLETS OF EXCEDRIN EX
     Route: 048

REACTIONS (1)
  - DRUG INEFFECTIVE [None]
